FAERS Safety Report 13055204 (Version 5)
Quarter: 2017Q2

REPORT INFORMATION
  Report Type: Spontaneous
  Country: JP (occurrence: JP)
  Receive Date: 20161222
  Receipt Date: 20170609
  Transmission Date: 20170830
  Serious: Yes (Hospitalization)
  Sender: FDA-Public Use
  Company Number: JP-UNITED THERAPEUTICS-UNT-2016-019101

PATIENT
  Age: 3 Decade
  Sex: Male
  Weight: 53.8 kg

DRUGS (1)
  1. REMODULIN [Suspect]
     Active Substance: TREPROSTINIL
     Indication: PULMONARY ARTERIAL HYPERTENSION
     Dosage: UNK
     Route: 058
     Dates: start: 20161124

REACTIONS (10)
  - Somnolence [Unknown]
  - Brain natriuretic peptide increased [Unknown]
  - Infusion site pain [Not Recovered/Not Resolved]
  - Pulmonary oedema [Not Recovered/Not Resolved]
  - Infusion site erythema [Recovered/Resolved]
  - Infusion site swelling [Recovering/Resolving]
  - Infusion site discharge [Unknown]
  - Infusion site warmth [Recovered/Resolved]
  - Disease progression [Unknown]
  - Constipation [Unknown]

NARRATIVE: CASE EVENT DATE: 20161209
